FAERS Safety Report 10389184 (Version 1)
Quarter: 2014Q3

REPORT INFORMATION
  Report Type: Spontaneous
  Country: CN (occurrence: CN)
  Receive Date: 20140817
  Receipt Date: 20140817
  Transmission Date: 20150326
  Serious: Yes (Other)
  Sender: FDA-Public Use
  Company Number: CN-JNJFOC-20140803229

PATIENT
  Age: 38 Year
  Sex: Male

DRUGS (3)
  1. TRADITIONAL CHINESE MEDICATION [Suspect]
     Active Substance: UNSPECIFIED INGREDIENT
     Indication: BALANITIS CANDIDA
     Route: 065
  2. DAKTARIN [Suspect]
     Active Substance: MICONAZOLE NITRATE
     Route: 061
  3. DAKTARIN [Suspect]
     Active Substance: MICONAZOLE NITRATE
     Indication: BALANITIS CANDIDA
     Route: 061
     Dates: start: 20131021, end: 20131027

REACTIONS (1)
  - Application site induration [Recovering/Resolving]

NARRATIVE: CASE EVENT DATE: 20131025
